FAERS Safety Report 8757246 (Version 2)
Quarter: 2012Q4

REPORT INFORMATION
  Report Type: Report from Study
  Country: CA (occurrence: CA)
  Receive Date: 20120829
  Receipt Date: 20121107
  Transmission Date: 20130627
  Serious: Yes (Hospitalization, Other)
  Sender: FDA-Public Use
  Company Number: CA-ABBOTT-12P-028-0963595-00

PATIENT
  Age: 45 Year
  Sex: Female
  Weight: 121 kg

DRUGS (8)
  1. HUMIRA [Suspect]
     Indication: CROHN^S DISEASE
     Route: 058
     Dates: start: 20120601
  2. QUETIAPINE [Concomitant]
     Indication: PRODUCT USED FOR UNKNOWN INDICATION
     Dosage: 25 hs bedtime
     Route: 048
  3. CLONAZEPAM [Concomitant]
     Indication: PRODUCT USED FOR UNKNOWN INDICATION
     Dosage: 1mg
  4. TYLENOL [Concomitant]
     Indication: PRODUCT USED FOR UNKNOWN INDICATION
  5. MORPHINE [Concomitant]
     Indication: PRODUCT USED FOR UNKNOWN INDICATION
  6. GRAVOL [Concomitant]
     Indication: PRODUCT USED FOR UNKNOWN INDICATION
  7. ZOFRAN [Concomitant]
     Indication: PRODUCT USED FOR UNKNOWN INDICATION
  8. FLOMAX [Concomitant]
     Indication: PRODUCT USED FOR UNKNOWN INDICATION

REACTIONS (7)
  - Ventricular fibrillation [Unknown]
  - Myocardial infarction [Unknown]
  - Cardiac arrest [Unknown]
  - Urosepsis [Unknown]
  - Nephrolithiasis [Unknown]
  - Cardiac disorder [Unknown]
  - Drug interaction [Unknown]
